FAERS Safety Report 18679663 (Version 1)
Quarter: 2020Q4

REPORT INFORMATION
  Report Type: Report from Study
  Country: US (occurrence: US)
  Receive Date: 20201229
  Receipt Date: 20201229
  Transmission Date: 20210114
  Serious: No
  Sender: FDA-Public Use
  Company Number: NVSC2020US339403

PATIENT
  Age: 60 Year
  Sex: Female

DRUGS (1)
  1. MAYZENT [Suspect]
     Active Substance: SIPONIMOD
     Indication: PRIMARY PROGRESSIVE MULTIPLE SCLEROSIS
     Dosage: 1 MG, QD
     Route: 048
     Dates: start: 20201103

REACTIONS (3)
  - Pyrexia [Not Recovered/Not Resolved]
  - Bronchitis [Not Recovered/Not Resolved]
  - Product dose omission issue [Not Recovered/Not Resolved]

NARRATIVE: CASE EVENT DATE: 20201207
